FAERS Safety Report 6418022-8 (Version None)
Quarter: 2009Q4

REPORT INFORMATION
  Report Type: 
  Country: None (occurrence: None)
  Receive Date: 20091028
  Receipt Date: 20091016
  Transmission Date: 20100525
  Serious: Yes (Other)
  Sender: FDA-Public Use
  Company Number: JP-PFIZER INC-2009286187

PATIENT
  Age: 47 Year

DRUGS (9)
  1. SOMATROPIN [Suspect]
     Indication: GROWTH HORMONE DEFICIENCY
     Dosage: 1.2 MG, 6 TIMES/WEEK
     Route: 058
     Dates: start: 20060830, end: 20061031
  2. SOMATROPIN [Suspect]
     Dosage: 1.8 MG, 6 TIMES/WEEK
     Route: 058
     Dates: start: 20061101
  3. SOMATROPIN [Suspect]
     Dosage: 1.4 MG, 7 TIMES/WEEK
  4. CORTRIL [Concomitant]
     Dosage: UNK
     Route: 048
  5. THYRADIN S [Concomitant]
     Dosage: UNK
     Route: 048
  6. HYDANTOL F [Concomitant]
     Dosage: UNK
     Route: 048
  7. TEGRETOL [Concomitant]
     Dosage: UNK
     Route: 048
  8. DESMOPRESSIN ACETATE [Concomitant]
     Dosage: UNK
  9. POLARAMINE [Concomitant]
     Dosage: UNK
     Route: 048

REACTIONS (2)
  - GERM CELL CANCER [None]
  - NEOPLASM RECURRENCE [None]
